FAERS Safety Report 25578531 (Version 1)
Quarter: 2025Q3

REPORT INFORMATION
  Report Type: Spontaneous
  Country: US (occurrence: US)
  Receive Date: 20250718
  Receipt Date: 20250718
  Transmission Date: 20251021
  Serious: No
  Sender: IPSEN BIOPHARMACEUTICALS, INC.
  Company Number: US-IPSEN Group, Research and Development-2025-17002

PATIENT
  Age: 21 Year
  Sex: Female

DRUGS (4)
  1. BYLVAY [Suspect]
     Active Substance: ODEVIXIBAT
     Indication: Liver disorder
     Dosage: TAKE TWO 400 MCG ORAL CAPSULES BY MOUTH ONCE DAILY WITH LUNCH.?BATCH NUMBER: W072085C; EXPIRY DATE: 9/30/2025 ?BATCH NUMBER: W083159F; EXPIRY DATE: 2/28/2027
     Dates: start: 20221122
  2. HYDROXYZINE [Concomitant]
     Active Substance: HYDROXYZINE HYDROCHLORIDE
  3. URSODIOL [Concomitant]
     Active Substance: URSODIOL
  4. MINERALS\VITAMINS [Concomitant]
     Active Substance: MINERALS\VITAMINS

REACTIONS (2)
  - Pruritus [Unknown]
  - Abdominal pain [Unknown]
